FAERS Safety Report 6076578-1 (Version None)
Quarter: 2009Q1

REPORT INFORMATION
  Report Type: 
  Country: None (occurrence: None)
  Receive Date: 20090213
  Receipt Date: 20090202
  Transmission Date: 20090719
  Serious: Yes (Death, Other)
  Sender: FDA-Public Use
  Company Number: GB-JNJFOC-20090102860

PATIENT
  Sex: Female
  Weight: 61 kg

DRUGS (15)
  1. REMICADE [Suspect]
     Indication: RHEUMATOID ARTHRITIS
     Route: 042
  2. METHOTREXATE [Concomitant]
  3. LEFLUNOMIDE [Concomitant]
  4. PREDNISOLONE [Concomitant]
  5. ADALAT [Concomitant]
  6. BRICANYL [Concomitant]
  7. CALCICHEW [Concomitant]
  8. CARBAMAZOPINE [Concomitant]
  9. CYCLIZINE [Concomitant]
  10. DIHYDROCODEINE BITARTRATE INJ [Concomitant]
  11. OMEPRAZOLE [Concomitant]
  12. PARACETAMOL [Concomitant]
  13. PULMICORT-100 [Concomitant]
  14. RISEDRONATE SODIUM [Concomitant]
  15. VOLTAREN [Concomitant]

REACTIONS (1)
  - HAEMORRHAGE INTRACRANIAL [None]
